FAERS Safety Report 15040905 (Version 1)
Quarter: 2018Q2

REPORT INFORMATION
  Report Type: Spontaneous
  Country: US (occurrence: US)
  Receive Date: 20180620
  Receipt Date: 20180620
  Transmission Date: 20180711
  Serious: No
  Sender: FDA-Public Use
  Company Number: US-B.I. PHARMACEUTICALS,INC./RIDGEFIELD-2018-BI-031266

PATIENT
  Age: 78 Year
  Sex: Female

DRUGS (3)
  1. STIOLTO RESPIMAT [Suspect]
     Active Substance: OLODATEROL HYDROCHLORIDE\TIOTROPIUM BROMIDE MONOHYDRATE
     Indication: BRONCHIECTASIS
     Route: 055
     Dates: start: 20180614
  2. ADVAIR HFA [Concomitant]
     Active Substance: FLUTICASONE PROPIONATE\SALMETEROL XINAFOATE
     Indication: BRONCHIECTASIS
     Dosage: BID;  FORM STRENGTH: 115/21MCG; FORMULATION: INHALATION AEROSOL
     Route: 055
     Dates: start: 1998
  3. IPRATROPIUM BROMIDE + ALBUTEROL [Concomitant]
     Indication: BRONCHIECTASIS
     Dosage: BID;  FORMULATION: INHALATION SOLUTION;
     Route: 055
     Dates: start: 2016

REACTIONS (2)
  - Off label use [Unknown]
  - Drug ineffective [Not Recovered/Not Resolved]

NARRATIVE: CASE EVENT DATE: 20180614
